FAERS Safety Report 6017493-9 (Version None)
Quarter: 2008Q4

REPORT INFORMATION
  Report Type: 
  Country: None (occurrence: None)
  Receive Date: 20081223
  Receipt Date: 20080130
  Transmission Date: 20090506
  Serious: No
  Sender: FDA-Public Use
  Company Number: US-BRISTOL-MYERS SQUIBB COMPANY-14058721

PATIENT
  Age: 52 Year
  Sex: Female
  Weight: 73 kg

DRUGS (5)
  1. CARDIOLITE [Suspect]
     Indication: CARDIAC STRESS TEST
     Dates: start: 20080104, end: 20080104
  2. BENICAR [Concomitant]
  3. LORAZEPAM [Concomitant]
  4. NORVASC [Concomitant]
  5. ANTIVERT [Concomitant]

REACTIONS (1)
  - VERTIGO POSITIONAL [None]
